FAERS Safety Report 20491676 (Version 3)
Quarter: 2022Q1

REPORT INFORMATION
  Report Type: Other
  Country: QA (occurrence: None)
  Receive Date: 20220218
  Receipt Date: 20220313
  Transmission Date: 20220423
  Serious: Yes (Hospitalization)
  Sender: FDA-Public Use
  Company Number: QA-ROCHE-3020565

PATIENT
  Age: 46 Year
  Sex: Male
  Weight: 91.4 kg

DRUGS (2)
  1. OCRELIZUMAB [Suspect]
     Active Substance: OCRELIZUMAB
     Indication: Primary progressive multiple sclerosis
     Dosage: ON 14/DEC/2020, PATIENT RECEIVED MOST RECENT DOSE OF STUDY OCRELIZUMAB ?EVERY 6 MONTH
     Route: 042
     Dates: start: 20201201
  2. METFORMIN [Concomitant]
     Active Substance: METFORMIN HYDROCHLORIDE
     Indication: Prophylaxis
     Route: 048

REACTIONS (1)
  - COVID-19 pneumonia [Recovered/Resolved]

NARRATIVE: CASE EVENT DATE: 20210413
